FAERS Safety Report 4565473-2 (Version None)
Quarter: 2005Q1

REPORT INFORMATION
  Report Type: 
  Country: None (occurrence: None)
  Receive Date: 20050125
  Receipt Date: 20050125
  Transmission Date: 20050727
  Serious: Yes (Hospitalization)
  Sender: FDA-Public Use
  Company Number: None

PATIENT
  Age: 22 Year
  Sex: Male
  Weight: 77.4 kg

DRUGS (1)
  1. PAROXETINE   UNKNOWN [Suspect]
     Indication: SOCIAL PHOBIA
     Dosage: 20MG   DAILY    ORAL
     Route: 048
     Dates: start: 20040728, end: 20040823

REACTIONS (1)
  - PANCREATITIS [None]
